FAERS Safety Report 8451744-6 (Version None)
Quarter: 2012Q2

REPORT INFORMATION
  Report Type: 
  Country: None (occurrence: None)
  Receive Date: 20120620
  Receipt Date: 20120316
  Transmission Date: 20120825
  Serious: No
  Sender: FDA-Public Use
  Company Number: US-VERTEX PHARMACEUTICALS INC.-AE-2012-003776

PATIENT
  Sex: Female
  Weight: 89.892 kg

DRUGS (8)
  1. RIBAVIRIN [Concomitant]
     Indication: HEPATITIS C
     Route: 048
     Dates: start: 20120203, end: 20120303
  2. OMEPRAZOLE [Concomitant]
     Route: 048
  3. INCIVEK [Suspect]
     Indication: HEPATITIS C
     Route: 048
     Dates: start: 20120203, end: 20120303
  4. PEGASYS [Concomitant]
     Indication: HEPATITIS C
     Route: 058
     Dates: start: 20120203, end: 20120303
  5. LISINOPRIL [Concomitant]
     Route: 048
  6. CELEXA [Concomitant]
     Route: 048
  7. METFORMIN HCL [Concomitant]
     Indication: DIABETES MELLITUS
     Route: 048
  8. WELLBUTRIN [Concomitant]
     Route: 048

REACTIONS (3)
  - RECTAL HAEMORRHAGE [None]
  - NAUSEA [None]
  - ANAL PRURITUS [None]
